FAERS Safety Report 21153619 (Version 1)
Quarter: 2022Q3

REPORT INFORMATION
  Report Type: Report from Study
  Country: CA (occurrence: CA)
  Receive Date: 20220801
  Receipt Date: 20220801
  Transmission Date: 20221027
  Serious: Yes (Other)
  Sender: FDA-Public Use
  Company Number: CA-ABBVIE-22K-028-4308741-00

PATIENT
  Sex: Female

DRUGS (1)
  1. HUMIRA [Suspect]
     Active Substance: ADALIMUMAB
     Indication: Product used for unknown indication
     Route: 058
     Dates: start: 20220225, end: 20220325

REACTIONS (10)
  - Uveitis [Unknown]
  - Sinus disorder [Unknown]
  - Fatigue [Unknown]
  - Exposure to SARS-CoV-2 [Unknown]
  - Injection site pain [Unknown]
  - Nausea [Recovered/Resolved]
  - Injection site pain [Unknown]
  - Injection site urticaria [Unknown]
  - Nasopharyngitis [Unknown]
  - Facial pain [Unknown]

NARRATIVE: CASE EVENT DATE: 20220101
